FAERS Safety Report 6806349-7 (Version None)
Quarter: 2010Q2

REPORT INFORMATION
  Report Type: 
  Country: None (occurrence: None)
  Receive Date: 20100629
  Receipt Date: 20080205
  Transmission Date: 20101027
  Serious: Yes (Death)
  Sender: FDA-Public Use
  Company Number: US-PFIZER INC-2008011465

PATIENT
  Sex: Female

DRUGS (13)
  1. TIKOSYN [Suspect]
     Indication: ATRIAL FIBRILLATION
  2. POTASSIUM [Concomitant]
  3. ACIPHEX [Concomitant]
  4. FUROSEMIDE [Concomitant]
  5. LEVOXYL [Concomitant]
  6. DIGITEK [Concomitant]
  7. ALTACE [Concomitant]
  8. LIPITOR [Concomitant]
  9. DOCUSATE SODIUM [Concomitant]
  10. VITAMIN C [Concomitant]
  11. MULTI-VITAMINS [Concomitant]
  12. VITAMIN D [Concomitant]
  13. CALCIUM CARBONATE [Concomitant]

REACTIONS (1)
  - MYOCARDIAL INFARCTION [None]
